FAERS Safety Report 9506260 (Version 1)
Quarter: 2013Q1

REPORT INFORMATION
  Report Type: Spontaneous
  Country: US (occurrence: None)
  Receive Date: 20130305
  Receipt Date: 20130305
  Transmission Date: 20140127
  Serious: Yes (Other)
  Sender: FDA-Public Use
  Company Number: 163-21880-12050182

PATIENT
  Age: 53 Year
  Sex: Male

DRUGS (5)
  1. REVLIMID [Suspect]
     Indication: PLASMA CELL MYELOMA
     Dosage: 25 MG, DAILY X 21 DAYS, 7 DAYS OFF
     Route: 048
     Dates: start: 201108
  2. ZOMETA(ZOLEDRONIC ACID) [Concomitant]
  3. DEXAMETHASONE [Concomitant]
  4. ASA(ACETYLSALICYL ACID) [Concomitant]
  5. METOPROLOL(METOPROLOL) [Concomitant]

REACTIONS (2)
  - Anaemia [None]
  - Thrombocytopenia [None]
